FAERS Safety Report 10202802 (Version 1)
Quarter: 2014Q2

REPORT INFORMATION
  Report Type: Spontaneous
  Country: US (occurrence: US)
  Receive Date: 20140528
  Receipt Date: 20140528
  Transmission Date: 20141212
  Serious: Yes (Hospitalization, Other)
  Sender: FDA-Public Use
  Company Number: US-ACTAVIS-2014-11366

PATIENT
  Age: 17 Year
  Sex: Male

DRUGS (12)
  1. PIPERACILLIN-TAZOBACTAM (UNKNOWN) [Suspect]
     Indication: PYREXIA
     Dosage: UNK
     Route: 065
  2. PIPERACILLIN-TAZOBACTAM (UNKNOWN) [Suspect]
     Indication: NEUTROPENIA
  3. VANCOMYCIN HCL (WATSON LABORATORIES) [Suspect]
     Indication: PYREXIA
     Dosage: UNK
     Route: 065
  4. VANCOMYCIN HCL (WATSON LABORATORIES) [Suspect]
     Indication: NEUTROPENIA
  5. CEFTAZIDIME (UNKNOWN) [Suspect]
     Indication: PYREXIA
     Dosage: UNK
     Route: 065
  6. CEFTAZIDIME (UNKNOWN) [Suspect]
     Indication: NEUTROPENIA
  7. METHOTREXATE (UNKNOWN) [Suspect]
     Indication: DIFFUSE LARGE B-CELL LYMPHOMA
     Dosage: 3 GM/M2, UNKNOWN
     Route: 065
  8. LEUCOVORIN                         /00566702/ [Concomitant]
     Indication: DIFFUSE LARGE B-CELL LYMPHOMA
     Dosage: UNK
     Route: 065
  9. VINCRISTINE [Concomitant]
     Indication: DIFFUSE LARGE B-CELL LYMPHOMA
     Dosage: UNK
     Route: 065
  10. PREDNISONE [Concomitant]
     Indication: DIFFUSE LARGE B-CELL LYMPHOMA
     Dosage: UNK
     Route: 065
  11. CYCLOPHOSPHAMIDE [Concomitant]
     Indication: DIFFUSE LARGE B-CELL LYMPHOMA
     Dosage: UNK
     Route: 065
  12. MESNA [Concomitant]
     Indication: DIFFUSE LARGE B-CELL LYMPHOMA
     Dosage: UNK
     Route: 065

REACTIONS (1)
  - Blood creatinine increased [Recovered/Resolved]
